FAERS Safety Report 24705129 (Version 1)
Quarter: 2024Q4

REPORT INFORMATION
  Report Type: Spontaneous
  Country: GB (occurrence: GB)
  Receive Date: 20241206
  Receipt Date: 20241206
  Transmission Date: 20250114
  Serious: Yes (Other)
  Sender: TEVA
  Company Number: GB-MHRA-WEBRADR-202411282201238810-SHFLZ

PATIENT
  Age: 34 Year
  Sex: Female
  Weight: 89 kg

DRUGS (1)
  1. SUMATRIPTAN [Suspect]
     Active Substance: SUMATRIPTAN
     Indication: Migraine
     Route: 048
     Dates: start: 20241128, end: 20241128

REACTIONS (5)
  - Swelling face [Recovered/Resolved]
  - Musculoskeletal stiffness [Recovering/Resolving]
  - Cold sweat [Recovered/Resolved]
  - Dizziness [Recovering/Resolving]
  - Chest discomfort [Recovered/Resolved]

NARRATIVE: CASE EVENT DATE: 20241128
